FAERS Safety Report 7146466-8 (Version None)
Quarter: 2010Q4

REPORT INFORMATION
  Report Type: 
  Country: None (occurrence: None)
  Receive Date: 20101208
  Receipt Date: 20101207
  Transmission Date: 20110411
  Serious: Yes (Death, Hospitalization)
  Sender: FDA-Public Use
  Company Number: PHHY2010US60145

PATIENT
  Sex: Male

DRUGS (2)
  1. EXJADE [Suspect]
     Indication: MYELODYSPLASTIC SYNDROME
     Dosage: 500 MG, QD
     Route: 048
  2. CHEMOTHERAPEUTICS NOS [Concomitant]
     Dosage: UNK

REACTIONS (6)
  - LABORATORY TEST ABNORMAL [None]
  - LEUKAEMIA [None]
  - MALIGNANT NEOPLASM PROGRESSION [None]
  - PLATELET DISORDER [None]
  - SEPSIS [None]
  - WHITE BLOOD CELL COUNT INCREASED [None]
